FAERS Safety Report 7244130-8 (Version None)
Quarter: 2011Q1

REPORT INFORMATION
  Report Type: 
  Country: None (occurrence: None)
  Receive Date: 20110125
  Receipt Date: 20110112
  Transmission Date: 20110831
  Serious: Yes (Hospitalization)
  Sender: FDA-Public Use
  Company Number: DE-MYLANLABS-2011S1000785

PATIENT
  Age: 42 Year
  Sex: Female
  Weight: 81 kg

DRUGS (14)
  1. GLIMEPIRIDE [Suspect]
     Indication: TYPE 2 DIABETES MELLITUS
     Route: 048
     Dates: start: 20080101, end: 20100511
  2. APSOMOL /00139501/ [Concomitant]
     Indication: ASTHMA
     Dosage: APPLIKATIONSHAUFIGKEIT UND DOSIS/TAG: NACH BEDARF
     Route: 055
     Dates: start: 20050101
  3. ARAVA [Suspect]
     Dates: start: 20100512
  4. PREDNISOLONE [Concomitant]
     Indication: RHEUMATOID ARTHRITIS
     Dosage: DOSIS/APPLIKATION: 2MG-1MG
     Route: 048
     Dates: start: 20090101
  5. CALCIMAGON /00108001/ [Concomitant]
     Indication: OSTEOPOROSIS PROPHYLAXIS
     Route: 048
     Dates: start: 20090101
  6. NALOXONE W/TILIDINE [Concomitant]
     Indication: PAIN
     Dosage: 1 DF= 50MG TILIDIN + 4MG NALOXON
     Route: 048
     Dates: start: 20100401
  7. ARAVA [Suspect]
     Indication: RHEUMATOID ARTHRITIS
     Route: 048
     Dates: start: 20090101, end: 20100430
  8. ENBREL [Suspect]
     Indication: RHEUMATOID ARTHRITIS
     Dosage: DOSIS/APPLIKATION: 75MG/WOCHE= DIENSTAGS: 50MG; FREITAGS: 25MG
     Route: 058
     Dates: start: 20090101, end: 20100429
  9. BYETTA [Suspect]
     Indication: TYPE 2 DIABETES MELLITUS
     Dosage: DOSIS/APPLIKATION: 10?G -0- 5?G
     Route: 058
     Dates: start: 20090101, end: 20100511
  10. FORTZAAR [Concomitant]
     Indication: HYPERTENSION
     Dosage: 1 DF= 100MG LOSARTAN + 25MG HYDROCHLOROTHIAZID
     Route: 048
     Dates: start: 20090101
  11. PANTOZOL [Concomitant]
     Indication: PROPHYLAXIS AGAINST GASTROINTESTINAL ULCER
     Route: 048
     Dates: start: 20100201
  12. DICLOFENAC [Suspect]
     Indication: RHEUMATOID ARTHRITIS
     Route: 048
     Dates: start: 20100201
  13. MAGNESIUM [Concomitant]
     Indication: PRODUCT USED FOR UNKNOWN INDICATION
     Dosage: DOSIS UNBEKANNT
     Route: 048
     Dates: start: 20090101
  14. TORASEMIDE [Concomitant]
     Indication: HYPERTENSION
     Route: 048
     Dates: start: 20090101

REACTIONS (1)
  - OEDEMATOUS PANCREATITIS [None]
